FAERS Safety Report 10119579 (Version 1)
Quarter: 2014Q2

REPORT INFORMATION
  Report Type: Spontaneous
  Country: US (occurrence: US)
  Receive Date: 20140425
  Receipt Date: 20140425
  Transmission Date: 20141212
  Serious: No
  Sender: FDA-Public Use
  Company Number: US-PFIZER INC-2014111430

PATIENT
  Age: 74 Year
  Sex: Female
  Weight: 47.17 kg

DRUGS (3)
  1. FLAGYL [Suspect]
     Indication: DIVERTICULITIS
     Dosage: 500 MG, 3X/DAY
     Dates: start: 20140410, end: 20140420
  2. CHANTIX [Suspect]
     Indication: SMOKING CESSATION THERAPY
     Dosage: UNK
     Dates: start: 20140405, end: 20140414
  3. SIMVASTATIN [Concomitant]
     Indication: BLOOD CHOLESTEROL INCREASED
     Dosage: 20 MG, DAILY

REACTIONS (1)
  - Nausea [Recovered/Resolved]
